FAERS Safety Report 19904305 (Version 1)
Quarter: 2021Q4

REPORT INFORMATION
  Report Type: Spontaneous
  Country: SE (occurrence: SE)
  Receive Date: 20211001
  Receipt Date: 20211001
  Transmission Date: 20220303
  Serious: Yes (Hospitalization, Disabling, Other)
  Sender: FDA-Public Use
  Company Number: None

PATIENT
  Age: 50 Year
  Sex: Male
  Weight: 74 kg

DRUGS (3)
  1. DISULFIRAM [Suspect]
     Active Substance: DISULFIRAM
     Indication: Alcohol abuse
     Dosage: 400 MG 1 TABLET THREE TIMES A WEEK:UNIT DOSE:1200MILLIGRAM
     Route: 048
     Dates: start: 20210709, end: 20210811
  2. CAMPRAL [Concomitant]
     Active Substance: ACAMPROSATE CALCIUM
     Dosage: 333 MG 2X3:ENTEROTABLETT:UNIT DOSE:1998MILLIGRAM
     Route: 048
     Dates: start: 20210702, end: 20210811
  3. Naltrexon Vitaflo 50 mg Filmdragerad tablett [Concomitant]
     Dosage: 50 MILLIGRAM DAILY; 1X1
     Route: 048
     Dates: start: 20210702, end: 20210811

REACTIONS (2)
  - Hepatitis toxic [Not Recovered/Not Resolved]
  - Diabetes mellitus [Not Recovered/Not Resolved]

NARRATIVE: CASE EVENT DATE: 20210811
